FAERS Safety Report 8503179-5 (Version None)
Quarter: 2012Q3

REPORT INFORMATION
  Report Type: 
  Country: None (occurrence: None)
  Receive Date: 20120711
  Receipt Date: 20120709
  Transmission Date: 20120928
  Serious: No
  Sender: FDA-Public Use
  Company Number: US-PFIZER INC-2012163950

PATIENT
  Sex: Male

DRUGS (1)
  1. GENOTROPIN [Suspect]
     Dosage: UNK

REACTIONS (2)
  - INJECTION SITE PAIN [None]
  - DRUG ADMINISTERED AT INAPPROPRIATE SITE [None]
